FAERS Safety Report 10030650 (Version 2)
Quarter: 2014Q1

REPORT INFORMATION
  Report Type: Spontaneous
  Country: US (occurrence: US)
  Receive Date: 20140323
  Receipt Date: 20140323
  Transmission Date: 20141002
  Serious: No
  Sender: FDA-Public Use
  Company Number: US-ALLERGAN-1319436US

PATIENT
  Sex: Female

DRUGS (5)
  1. LATISSE 0.03% [Suspect]
     Indication: GROWTH OF EYELASHES
     Dosage: 2 GTT, QHS
     Route: 061
  2. BISOPROLOL [Concomitant]
     Indication: HEART RATE IRREGULAR
     Dosage: 5 MG, QD
     Route: 048
  3. MAGNESIUM [Concomitant]
     Indication: SUPPLEMENTATION THERAPY
     Dosage: 1200 MG, QD
     Route: 048
  4. PREVACID [Concomitant]
     Indication: GASTROOESOPHAGEAL REFLUX DISEASE
     Dosage: 30 MG, QD
     Route: 048
  5. OTC LUBRICATING EYE DROPS [Concomitant]
     Indication: EYE LUBRICATION THERAPY
     Dosage: UNK

REACTIONS (3)
  - Eyelash discolouration [Unknown]
  - Trichorrhexis [Unknown]
  - Drug ineffective [Unknown]
